FAERS Safety Report 24223081 (Version 1)
Quarter: 2024Q3

REPORT INFORMATION
  Report Type: Spontaneous
  Country: PL (occurrence: PL)
  Receive Date: 20240819
  Receipt Date: 20240819
  Transmission Date: 20241016
  Serious: Yes (Life-Threatening, Hospitalization, Other)
  Sender: SANDOZ
  Company Number: PL-EMA-DD-20180921-faizanevprod-135849

PATIENT
  Age: 61 Year
  Sex: Male

DRUGS (32)
  1. CALCIUM [Suspect]
     Active Substance: CALCIUM
     Indication: Product used for unknown indication
     Dosage: UNK
     Route: 065
  2. CEFTRIAXONE [Suspect]
     Active Substance: CEFTRIAXONE\CEFTRIAXONE SODIUM
     Route: 065
  3. CEFTRIAXONE [Suspect]
     Active Substance: CEFTRIAXONE\CEFTRIAXONE SODIUM
     Route: 065
  4. CEFTRIAXONE [Suspect]
     Active Substance: CEFTRIAXONE\CEFTRIAXONE SODIUM
     Route: 065
  5. CEFTRIAXONE [Suspect]
     Active Substance: CEFTRIAXONE\CEFTRIAXONE SODIUM
     Indication: Immunosuppressant drug therapy
     Dosage: UNK
     Route: 065
  6. FUROSEMIDE [Suspect]
     Active Substance: FUROSEMIDE
     Indication: Product used for unknown indication
     Route: 065
  7. MYCOPHENOLATE MOFETIL [Suspect]
     Active Substance: MYCOPHENOLATE MOFETIL
     Indication: Renal transplant
     Dosage: 1500 MG, UNK
     Route: 065
  8. MYCOPHENOLATE MOFETIL [Suspect]
     Active Substance: MYCOPHENOLATE MOFETIL
     Indication: Immunosuppressant drug therapy
     Dosage: 2 G, QD
     Route: 065
     Dates: start: 201710, end: 201710
  9. MYCOPHENOLATE MOFETIL [Suspect]
     Active Substance: MYCOPHENOLATE MOFETIL
     Dosage: 2 G, UNK
     Route: 065
  10. MORPHINE [Suspect]
     Active Substance: MORPHINE
     Indication: Pain
     Dosage: UNK
     Route: 065
  11. MORPHINE [Suspect]
     Active Substance: MORPHINE
     Indication: Immunosuppressant drug therapy
  12. MORPHINE SULFATE [Suspect]
     Active Substance: MORPHINE SULFATE
     Indication: Immunosuppression
     Dosage: UNK
     Route: 065
  13. ACETAMINOPHEN [Suspect]
     Active Substance: ACETAMINOPHEN
     Indication: Pain
     Dosage: UNK
     Route: 065
  14. ACETAMINOPHEN [Suspect]
     Active Substance: ACETAMINOPHEN
     Route: 065
  15. PREDNISOLONE [Suspect]
     Active Substance: PREDNISOLONE
     Indication: Renal transplant
     Dosage: 15 MG, QD
     Route: 065
     Dates: start: 201710
  16. PREDNISOLONE [Suspect]
     Active Substance: PREDNISOLONE
     Indication: Immunosuppressant drug therapy
     Dosage: 20 MG, UNK
     Route: 065
     Dates: start: 201710, end: 201710
  17. SIMULECT [Suspect]
     Active Substance: BASILIXIMAB
     Dosage: INITIAL DOSE OF 14 MG/DAY
     Route: 065
  18. SIMULECT [Suspect]
     Active Substance: BASILIXIMAB
     Indication: Immunosuppressant drug therapy
     Route: 065
  19. SIMULECT [Suspect]
     Active Substance: BASILIXIMAB
     Indication: Renal transplant
     Dosage: UNK
     Route: 065
  20. SULFAMETHOXAZOLE [Suspect]
     Active Substance: SULFAMETHOXAZOLE
     Indication: Immunosuppressant drug therapy
     Route: 065
  21. SULFAMETHOXAZOLE [Suspect]
     Active Substance: SULFAMETHOXAZOLE
     Route: 065
  22. SULFAMETHOXAZOLE [Suspect]
     Active Substance: SULFAMETHOXAZOLE
     Route: 065
  23. SULFAMETHOXAZOLE [Suspect]
     Active Substance: SULFAMETHOXAZOLE
     Indication: Renal transplant
     Dosage: UNK
     Route: 065
  24. TACROLIMUS [Suspect]
     Active Substance: TACROLIMUS
     Dosage: 10 MG, UNK
     Route: 065
  25. TACROLIMUS [Suspect]
     Active Substance: TACROLIMUS
     Indication: Renal transplant
     Dosage: 14 MG, QD
     Route: 065
     Dates: start: 201710, end: 201710
  26. TACROLIMUS [Suspect]
     Active Substance: TACROLIMUS
     Dosage: 14 MG, UNK
     Route: 065
  27. TACROLIMUS [Suspect]
     Active Substance: TACROLIMUS
     Dosage: 2 MG, UNK
     Route: 065
  28. TACROLIMUS [Suspect]
     Active Substance: TACROLIMUS
     Dosage: 9 MG, UNK
     Route: 065
  29. TACROLIMUS [Suspect]
     Active Substance: TACROLIMUS
     Indication: Immunosuppressant drug therapy
     Dosage: 10 MG, QD
     Route: 065
     Dates: start: 201710, end: 201710
  30. TACROLIMUS [Suspect]
     Active Substance: TACROLIMUS
     Dosage: 2 MG, QD
     Route: 065
     Dates: start: 201710
  31. TACROLIMUS [Suspect]
     Active Substance: TACROLIMUS
     Dosage: 9 MG, QD
     Route: 065
     Dates: start: 201710, end: 201710
  32. VITAMIN D [Suspect]
     Active Substance: VITAMIN D NOS
     Indication: Immunosuppressant drug therapy
     Dosage: UNK
     Route: 065

REACTIONS (5)
  - Pancreatitis acute [Recovered/Resolved]
  - Diarrhoea [Recovered/Resolved]
  - Abdominal pain [Recovered/Resolved]
  - Sphincter of Oddi dysfunction [Unknown]
  - Delayed graft function [Unknown]

NARRATIVE: CASE EVENT DATE: 20171001
